FAERS Safety Report 9034523 (Version 1)
Quarter: 2013Q1

REPORT INFORMATION
  Report Type: Spontaneous
  Country: US (occurrence: None)
  Receive Date: 20130116
  Receipt Date: 20130116
  Transmission Date: 20140127
  Serious: Yes (Other)
  Sender: FDA-Public Use
  Company Number: None

PATIENT
  Age: 86 Year
  Sex: Female
  Weight: 73.48 kg

DRUGS (2)
  1. MINOCYCLINE [Suspect]
     Indication: NASAL OPERATION
     Dates: start: 20121211, end: 20121215
  2. MINOCYCLINE [Suspect]
     Dates: start: 20121211, end: 20121215

REACTIONS (3)
  - Feeling abnormal [None]
  - Dyspnoea [None]
  - Drug hypersensitivity [None]
